FAERS Safety Report 8561166-5 (Version None)
Quarter: 2012Q3

REPORT INFORMATION
  Report Type: 
  Country: None (occurrence: None)
  Receive Date: 20120802
  Receipt Date: 20120723
  Transmission Date: 20120928
  Serious: Yes (Death, Hospitalization, Other)
  Sender: FDA-Public Use
  Company Number: JP-ACTELION-A-CH2012-68302

PATIENT
  Age: 13 Year
  Sex: Male
  Weight: 38 kg

DRUGS (13)
  1. TRACLEER [Suspect]
     Dosage: 15.63 MG, BID
     Route: 048
     Dates: start: 20090415, end: 20090512
  2. TRACLEER [Suspect]
     Indication: PULMONARY ARTERIAL HYPERTENSION
     Dosage: 31.25 MG, BID
     Route: 048
     Dates: start: 20090513, end: 20110602
  3. FUROSEMIDE [Concomitant]
  4. SILDENAFIL CITRATE [Concomitant]
  5. URSODIOL [Concomitant]
  6. GLYCINE [Concomitant]
  7. METHIONINUM [Concomitant]
  8. AMIODARONE HCL [Suspect]
     Dosage: 100 MG, BID
     Route: 048
     Dates: start: 20100121, end: 20100202
  9. SPIRONOLACTONE [Concomitant]
  10. BERAPROST SODIUM [Concomitant]
  11. GLYCYRRHIZIC ACID, AMMONIUM SALT [Concomitant]
  12. AMIODARONE HCL [Suspect]
     Dosage: 50 MG, BID
     Route: 048
     Dates: start: 20100203, end: 20100205
  13. AMIODARONE HCL [Suspect]
     Dosage: 100 MG, BID
     Route: 048
     Dates: start: 20110112

REACTIONS (16)
  - ASPARTATE AMINOTRANSFERASE INCREASED [None]
  - EPSTEIN-BARR VIRUS INFECTION [None]
  - RIGHT VENTRICULAR FAILURE [None]
  - ABDOMINAL PAIN [None]
  - HEPATIC FUNCTION ABNORMAL [None]
  - NODAL ARRHYTHMIA [None]
  - EXTRASYSTOLES [None]
  - SEPSIS [None]
  - STEM CELL TRANSPLANT [None]
  - THROMBOCYTOPENIC PURPURA [None]
  - DERMATITIS ALLERGIC [None]
  - SEPTIC SHOCK [None]
  - ALANINE AMINOTRANSFERASE INCREASED [None]
  - CONCOMITANT DISEASE PROGRESSION [None]
  - EPSTEIN-BARR VIRUS TEST POSITIVE [None]
  - CORONARY ARTERY ANEURYSM [None]
